FAERS Safety Report 5874091-5 (Version None)
Quarter: 2008Q3

REPORT INFORMATION
  Report Type: 
  Country: None (occurrence: None)
  Receive Date: 20080829
  Receipt Date: 20080314
  Transmission Date: 20090109
  Serious: Yes (Other)
  Sender: FDA-Public Use
  Company Number: 2008S1010842

PATIENT
  Age: 43 Year
  Sex: Female

DRUGS (3)
  1. CLARITHROMYCIN [Suspect]
     Indication: LOWER RESPIRATORY TRACT INFECTION
     Dosage: 500 MG
     Dates: start: 20070205, end: 20070209
  2. ERYTHROMYCIN (ERYTHROMYCIN) (CON.) [Concomitant]
  3. EFALEX (EFALEX) (CON.) [Concomitant]

REACTIONS (2)
  - ABSCESS [None]
  - INTESTINAL PERFORATION [None]
